FAERS Safety Report 5077580 (Version 2)
Quarter: 2013Q2

REPORT INFORMATION
  Report Type: Other
  Country: SE (occurrence: SE)
  Receive Date: 19940202
  Receipt Date: 20130515
  Transmission Date: 20140414
  Serious: Yes (Other)
  Sender: FDA-Public Use
  Company Number: B015955

PATIENT
  Age: 9 Year
  Sex: Male

DRUGS (9)
  1. VUMON CONC INJ [Suspect]
     Indication: FAMILIAL HAEMOPHAGOCYTIC LYMPHOHISTIOCYTOSIS
     Dosage: DOSE UNIT: GRAM/SQUARE METER
     Route: 050
  2. VEPESID INJ [Suspect]
     Indication: FAMILIAL HAEMOPHAGOCYTIC LYMPHOHISTIOCYTOSIS
     Dosage: DOSE UNIT: GRAM/SQUARE METER
     Route: 050
  3. VEPESID CAPS [Suspect]
     Indication: FAMILIAL HAEMOPHAGOCYTIC LYMPHOHISTIOCYTOSIS
     Dosage: DOSE UNIT: GRAM/SQUARE METER
     Route: 048
  4. CYCLOSPORIN A [Concomitant]
     Route: 048
  5. MEXATE [Concomitant]
     Route: 037
  6. STEROIDS [Concomitant]
  7. INDOMETHACIN [Concomitant]
  8. CYCLOSPORINE [Concomitant]
  9. IMMUNOGLOBULIN [Concomitant]

REACTIONS (2)
  - Myelodysplastic syndrome [Unknown]
  - Bone marrow transplant [Unknown]
